FAERS Safety Report 18871441 (Version 1)
Quarter: 2021Q1

REPORT INFORMATION
  Report Type: Spontaneous
  Country: US (occurrence: US)
  Receive Date: 20210209
  Receipt Date: 20210209
  Transmission Date: 20210420
  Serious: No
  Sender: FDA-Public Use
  Company Number: None

PATIENT
  Age: 74 Year
  Sex: Female
  Weight: 93.29 kg

DRUGS (21)
  1. SUCRALFATE. [Concomitant]
     Active Substance: SUCRALFATE
  2. BREO ELLIPTA [Concomitant]
     Active Substance: FLUTICASONE FUROATE\VILANTEROL TRIFENATATE
  3. CHLORPHENIRAMINE. [Concomitant]
     Active Substance: CHLORPHENIRAMINE
  4. GABAPENTIN. [Concomitant]
     Active Substance: GABAPENTIN
  5. MAGDELAY [Concomitant]
  6. METAMUCIL [Concomitant]
     Active Substance: PLANTAGO SEED
  7. ONDANSETRON [Concomitant]
     Active Substance: ONDANSETRON
  8. ARANESP [Concomitant]
     Active Substance: DARBEPOETIN ALFA
  9. REQUIP [Concomitant]
     Active Substance: ROPINIROLE HYDROCHLORIDE
  10. ROBAXIN [Concomitant]
     Active Substance: METHOCARBAMOL
  11. YUVAFEM [Concomitant]
     Active Substance: ESTRADIOL HEMIHYDRATE
  12. ACETAMINOPHEN. [Concomitant]
     Active Substance: ACETAMINOPHEN
  13. LASIX [Concomitant]
     Active Substance: FUROSEMIDE
  14. SENNA?DOCUSATE [Concomitant]
     Active Substance: DOCUSATE SODIUM\SENNOSIDES
  15. TRIAMCINOLONE [Concomitant]
     Active Substance: TRIAMCINOLONE
  16. ALBUTEROL HFA [Concomitant]
     Active Substance: ALBUTEROL SULFATE
  17. LEVOTHYOXINE [Concomitant]
     Active Substance: LEVOTHYROXINE
  18. ZYRTEC [Concomitant]
     Active Substance: CETIRIZINE HYDROCHLORIDE
  19. METOPROLOL TARTRATE. [Concomitant]
     Active Substance: METOPROLOL TARTRATE
  20. TUMS [Concomitant]
     Active Substance: CALCIUM CARBONATE
  21. TASIGNA [Suspect]
     Active Substance: NILOTINIB
     Indication: CHRONIC MYELOID LEUKAEMIA
     Route: 048

REACTIONS (1)
  - Full blood count decreased [None]

NARRATIVE: CASE EVENT DATE: 20210209
